FAERS Safety Report 4798365-4 (Version None)
Quarter: 2005Q4

REPORT INFORMATION
  Report Type: 
  Country: None (occurrence: None)
  Receive Date: 20051014
  Receipt Date: 20051010
  Transmission Date: 20060501
  Serious: Yes (Hospitalization)
  Sender: FDA-Public Use
  Company Number: 200519039GDDC

PATIENT
  Sex: Male
  Weight: 80 kg

DRUGS (1)
  1. RIFOLDIN [Suspect]
     Dosage: DOSE: UNK

REACTIONS (2)
  - MUSCLE SPASMS [None]
  - SUICIDE ATTEMPT [None]
